FAERS Safety Report 24554763 (Version 1)
Quarter: 2024Q4

REPORT INFORMATION
  Report Type: Spontaneous
  Country: US (occurrence: US)
  Receive Date: 20241028
  Receipt Date: 20241028
  Transmission Date: 20250115
  Serious: Yes (Other)
  Sender: ABBVIE
  Company Number: US-ABBVIE-5978799

PATIENT
  Age: 58 Year
  Sex: Male

DRUGS (2)
  1. VENCLEXTA [Suspect]
     Active Substance: VENETOCLAX
     Indication: Acute myeloid leukaemia
     Dosage: LAST ADMIN DATE: 2024
     Route: 048
     Dates: start: 20240729
  2. INQOVI [Suspect]
     Active Substance: CEDAZURIDINE\DECITABINE
     Indication: Acute myeloid leukaemia
     Dosage: 1-5 OF A 28-DAY CYCLE
     Route: 065
     Dates: start: 20240729

REACTIONS (8)
  - Transplant [Unknown]
  - Arthralgia [Unknown]
  - Product use in unapproved indication [Unknown]
  - Decreased appetite [Unknown]
  - Nausea [Unknown]
  - Disease progression [Unknown]
  - Migraine [Unknown]
  - Anxiety [Unknown]

NARRATIVE: CASE EVENT DATE: 20240101
